FAERS Safety Report 4594987-4 (Version None)
Quarter: 2005Q1

REPORT INFORMATION
  Report Type: 
  Country: None (occurrence: None)
  Receive Date: 20050223
  Receipt Date: 20041215
  Transmission Date: 20050727
  Serious: Yes (Hospitalization)
  Sender: FDA-Public Use
  Company Number: 04P-087-0282681-00

PATIENT
  Age: 72 Year
  Sex: Female

DRUGS (9)
  1. ISOPTIN [Suspect]
     Indication: HYPERTROPHIC CARDIOMYOPATHY
     Dosage: SEE IMAGE
     Route: 048
     Dates: start: 19921108, end: 20041207
  2. ISOPTIN [Suspect]
     Indication: HYPERTROPHIC CARDIOMYOPATHY
     Dosage: SEE IMAGE
     Route: 048
     Dates: start: 20041207
  3. NICORANDIL [Suspect]
     Indication: ANGINA PECTORIS
     Dosage: 3 DOSAGE FORMS, 1 IN 1 D, PER ORAL
     Route: 048
     Dates: start: 19971021
  4. FAMOTIDINE [Suspect]
     Indication: GASTRITIS
     Dosage: 2 DOSAGE FORMS, 1 IN 1 D, PER ORAL
     Route: 048
     Dates: start: 20010101
  5. LEVOTHYROXINE SODIUM [Concomitant]
  6. MAGNESIUM OXIDE [Concomitant]
  7. MOSAPRIDE CITRATE [Concomitant]
  8. P  MAGEN [Concomitant]
  9. CIPRALAN [Concomitant]

REACTIONS (9)
  - ALANINE AMINOTRANSFERASE INCREASED [None]
  - ANOREXIA [None]
  - ASPARTATE AMINOTRANSFERASE INCREASED [None]
  - GASTROINTESTINAL DISORDER [None]
  - LIVER DISORDER [None]
  - MALAISE [None]
  - NAUSEA [None]
  - ORAL ADMINISTRATION COMPLICATION [None]
  - STOMACH DISCOMFORT [None]
